FAERS Safety Report 22047816 (Version 2)
Quarter: 2024Q2

REPORT INFORMATION
  Report Type: Spontaneous
  Country: US (occurrence: US)
  Receive Date: 20230301
  Receipt Date: 20240515
  Transmission Date: 20240716
  Serious: Yes (Other)
  Sender: FDA-Public Use
  Company Number: US-BMS-IMIDS-REMS_SI-10144081

PATIENT

DRUGS (1)
  1. LENALIDOMIDE [Suspect]
     Active Substance: LENALIDOMIDE
     Indication: Product used for unknown indication
     Dosage: 25 MG
     Route: 065
     Dates: start: 20200221

REACTIONS (7)
  - Blood glucose increased [Unknown]
  - Rash macular [Unknown]
  - Skin exfoliation [Unknown]
  - Gait disturbance [Unknown]
  - Balance disorder [Unknown]
  - Scab [Unknown]
  - Amnesia [Unknown]

NARRATIVE: CASE EVENT DATE: 20230217
